FAERS Safety Report 4573954-0 (Version None)
Quarter: 2005Q1

REPORT INFORMATION
  Report Type: 
  Country: None (occurrence: None)
  Receive Date: 20050204
  Receipt Date: 20050128
  Transmission Date: 20050727
  Serious: Yes (Other)
  Sender: FDA-Public Use
  Company Number: 003995

PATIENT
  Age: 16 Year
  Sex: Female
  Weight: 34 kg

DRUGS (11)
  1. SPRINTEC [Suspect]
     Indication: MENSTRUATION IRREGULAR
     Dosage: 1.00 TABLET, QD, ORAL
     Route: 048
     Dates: start: 20050109, end: 20050128
  2. KEPPRA [Concomitant]
  3. DEPAKOTE [Concomitant]
  4. DIAMOX [Concomitant]
  5. CLONAZEPAM [Concomitant]
  6. CARNITOR (LEVOCARNITINE) [Concomitant]
  7. CALCI-MIX (CALCIUM CARBONATE) [Concomitant]
  8. THIAMINE (THIAMINE) [Concomitant]
  9. COENZYME Q10 [Concomitant]
  10. RIBOFLAVIN (RIBOFLAVIN) [Concomitant]
  11. ALBUTEROL [Concomitant]

REACTIONS (6)
  - CONDITION AGGRAVATED [None]
  - CONVULSION [None]
  - DRUG LEVEL INCREASED [None]
  - LETHARGY [None]
  - MENSTRUATION IRREGULAR [None]
  - VOMITING [None]
